FAERS Safety Report 7945712-8 (Version None)
Quarter: 2011Q4

REPORT INFORMATION
  Report Type: 
  Country: None (occurrence: None)
  Receive Date: 20111129
  Receipt Date: 20110519
  Transmission Date: 20120403
  Serious: No
  Sender: FDA-Public Use
  Company Number: US-MYLANLABS-2011S1008588

PATIENT
  Age: 39 Year
  Sex: Female
  Weight: 117.94 kg

DRUGS (10)
  1. EFFEXOR [Concomitant]
  2. TEMAZEPAM [Suspect]
     Indication: INSOMNIA
  3. IBUPROFEN [Concomitant]
  4. CLONAZEPAM [Suspect]
     Indication: INSOMNIA
     Route: 048
     Dates: start: 20110411
  5. CLONAZEPAM [Suspect]
     Indication: ANXIETY
     Route: 048
     Dates: start: 20110411
  6. FLEXERIL [Concomitant]
  7. DYAZIDE [Concomitant]
  8. TOPAMAX [Concomitant]
  9. PROTONIX [Concomitant]
  10. CLONAZEPAM [Suspect]
     Indication: POST-TRAUMATIC STRESS DISORDER
     Route: 048
     Dates: start: 20110411

REACTIONS (1)
  - FALSE POSITIVE INVESTIGATION RESULT [None]
